FAERS Safety Report 22654281 (Version 3)
Quarter: 2023Q4

REPORT INFORMATION
  Report Type: Spontaneous
  Country: US (occurrence: US)
  Receive Date: 20230629
  Receipt Date: 20231225
  Transmission Date: 20240109
  Serious: Yes (Other)
  Sender: FDA-Public Use
  Company Number: US-BRISTOL-MYERS SQUIBB COMPANY-2023-088711

PATIENT
  Age: 71 Year
  Sex: Female

DRUGS (1)
  1. POMALYST [Suspect]
     Active Substance: POMALIDOMIDE
     Indication: Plasma cell myeloma refractory
     Dosage: TAKE 1 CAPSULE BY MOUTH AT BEDTIME ON DAYS 1-21 OF A 28 DAY CYCLE
     Route: 048
     Dates: start: 20221201

REACTIONS (14)
  - Muscle spasms [Not Recovered/Not Resolved]
  - Fatigue [Not Recovered/Not Resolved]
  - Somnolence [Not Recovered/Not Resolved]
  - Constipation [Not Recovered/Not Resolved]
  - Diarrhoea [Not Recovered/Not Resolved]
  - Dyspnoea [Not Recovered/Not Resolved]
  - Condition aggravated [Not Recovered/Not Resolved]
  - Lactose intolerance [Not Recovered/Not Resolved]
  - Movement disorder [Not Recovered/Not Resolved]
  - COVID-19 [Recovering/Resolving]
  - Malaise [Recovering/Resolving]
  - Blood creatinine increased [Recovering/Resolving]
  - Pain [Not Recovered/Not Resolved]
  - Cardiac disorder [Not Recovered/Not Resolved]
